FAERS Safety Report 24149710 (Version 1)
Quarter: 2024Q3

REPORT INFORMATION
  Report Type: Report from Study
  Country: US (occurrence: None)
  Receive Date: 20240730
  Receipt Date: 20240730
  Transmission Date: 20241016
  Serious: Yes (Hospitalization)
  Sender: ASTRAZENECA
  Company Number: 2021A617456

PATIENT
  Sex: Male

DRUGS (1)
  1. CALQUENCE [Suspect]
     Active Substance: ACALABRUTINIB
     Route: 048

REACTIONS (4)
  - Fall [Recovering/Resolving]
  - Pulmonary haemorrhage [Recovering/Resolving]
  - Pulmonary oedema [Recovering/Resolving]
  - Traumatic lung injury [Unknown]
